FAERS Safety Report 20533909 (Version 1)
Quarter: 2022Q1

REPORT INFORMATION
  Report Type: Spontaneous
  Country: JP (occurrence: JP)
  Receive Date: 20220301
  Receipt Date: 20220301
  Transmission Date: 20220423
  Serious: Yes (Hospitalization, Disabling, Other)
  Sender: FDA-Public Use
  Company Number: JP-AMGEN-JPNSP2022022322

PATIENT
  Age: 88 Year
  Sex: Female
  Weight: 43 kg

DRUGS (7)
  1. EVENITY [Suspect]
     Active Substance: ROMOSOZUMAB-AQQG
     Indication: Osteoporosis
     Dosage: 210 MILLIGRAM
     Route: 058
     Dates: start: 20211223, end: 20220115
  2. ALFACALCIDOL [Concomitant]
     Active Substance: ALFACALCIDOL
     Dosage: 0.5 MICROGRAM, QD
     Dates: end: 20220122
  3. LUNESTA [Concomitant]
     Active Substance: ESZOPICLONE
     Dosage: 1 MILLIGRAM, QD
     Dates: end: 20220122
  4. NIFEDIPINE [Concomitant]
     Active Substance: NIFEDIPINE
     Indication: Hypertension
     Dosage: 10 MILLIGRAM, QD
     Dates: end: 20220122
  5. CONSTAN DS [Concomitant]
     Dosage: 0.4 MILLIGRAM, QD
     Dates: end: 20220122
  6. IFENPRODIL TARTRATE [Concomitant]
     Active Substance: IFENPRODIL TARTRATE
     Dosage: 20 MILLIGRAM, TID
     Dates: end: 20220122
  7. AMITIZA [Concomitant]
     Active Substance: LUBIPROSTONE
     Dosage: 12 MICROGRAM, QD
     Dates: end: 20220122

REACTIONS (4)
  - Brain stem infarction [Recovered/Resolved with Sequelae]
  - Contusion [Unknown]
  - Blood pressure systolic increased [Unknown]
  - Fall [Unknown]

NARRATIVE: CASE EVENT DATE: 20220123
